FAERS Safety Report 14475288 (Version 1)
Quarter: 2018Q1

REPORT INFORMATION
  Report Type: Spontaneous
  Country: TR (occurrence: TR)
  Receive Date: 20180201
  Receipt Date: 20180201
  Transmission Date: 20180509
  Serious: Yes (Other)
  Sender: FDA-Public Use
  Company Number: TR-SA-2018SA022967

PATIENT
  Sex: Female

DRUGS (6)
  1. PLAVIX [Suspect]
     Active Substance: CLOPIDOGREL BISULFATE
     Indication: ARTERIOSCLEROSIS
     Route: 048
     Dates: start: 201709
  2. IRBESARTAN + HCTZ [Concomitant]
     Active Substance: HYDROCHLOROTHIAZIDE\IRBESARTAN
     Indication: HYPERTENSION
     Route: 048
  3. NOOTROPIL [Concomitant]
     Active Substance: PIRACETAM
     Indication: ARTERIOSCLEROSIS
     Route: 065
  4. ECOPIRIN [Concomitant]
     Active Substance: ASPIRIN
     Route: 048
  5. SANELOC [Concomitant]
     Active Substance: METOPROLOL
     Indication: HYPERTENSION
     Route: 048
  6. PINGEL [Suspect]
     Active Substance: CLOPIDOGREL BISULFATE
     Indication: ARTERIOSCLEROSIS
     Route: 048
     Dates: start: 201710

REACTIONS (4)
  - Hallucination [Recovered/Resolved]
  - Ageusia [None]
  - Delirium [Recovered/Resolved]
  - Dysgeusia [Unknown]
